FAERS Safety Report 4956040-7 (Version None)
Quarter: 2006Q1

REPORT INFORMATION
  Report Type: 
  Country: None (occurrence: None)
  Receive Date: 20060328
  Receipt Date: 20051216
  Transmission Date: 20060701
  Serious: Yes (Hospitalization)
  Sender: FDA-Public Use
  Company Number: US-MERCK-0512USA03093

PATIENT
  Age: 69 Year
  Sex: Male
  Weight: 68 kg

DRUGS (4)
  1. VIOXX [Suspect]
     Indication: OSTEOARTHRITIS
     Route: 048
     Dates: start: 20000316, end: 20010601
  2. PLENDIL [Concomitant]
     Route: 048
  3. ASPIRIN [Concomitant]
     Route: 065
  4. COZAAR [Concomitant]
     Route: 065

REACTIONS (7)
  - CEREBRAL ATROPHY [None]
  - CEREBROVASCULAR ACCIDENT [None]
  - CHRONIC OBSTRUCTIVE PULMONARY DISEASE [None]
  - DYSPNOEA [None]
  - FEMUR FRACTURE [None]
  - HYPERTENSION [None]
  - OSTEOPOROSIS [None]
